FAERS Safety Report 16309562 (Version 1)
Quarter: 2019Q2

REPORT INFORMATION
  Report Type: Report from Study
  Country: US (occurrence: US)
  Receive Date: 20190514
  Receipt Date: 20190514
  Transmission Date: 20190711
  Serious: Yes (Hospitalization, Other)
  Sender: FDA-Public Use
  Company Number: US-BAYER-2019-095157

PATIENT
  Age: 57 Year
  Sex: Male
  Weight: 68.48 kg

DRUGS (3)
  1. ADEMPAS [Suspect]
     Active Substance: RIOCIGUAT
     Indication: PULMONARY ARTERIAL HYPERTENSION
     Dosage: UNK
     Dates: start: 20181002
  2. ADEMPAS [Suspect]
     Active Substance: RIOCIGUAT
     Indication: PULMONARY ARTERIAL HYPERTENSION
     Dosage: 2.5 MG, TID
     Route: 048
  3. ELIQUIS [Concomitant]
     Active Substance: APIXABAN
     Dosage: UNK

REACTIONS (11)
  - Anaemia [None]
  - Fall [None]
  - Lower limb fracture [None]
  - Injury [None]
  - Contusion [None]
  - Fall [None]
  - Syncope [None]
  - Fall [None]
  - Rib fracture [None]
  - Syncope [None]
  - Syncope [Unknown]

NARRATIVE: CASE EVENT DATE: 2018
